FAERS Safety Report 25189342 (Version 1)
Quarter: 2025Q2

REPORT INFORMATION
  Report Type: Other
  Country: US (occurrence: US)
  Receive Date: 20250411
  Receipt Date: 20250411
  Transmission Date: 20250717
  Serious: No
  Sender: SCIEGEN
  Company Number: US-SCIEGENP-2025SCSPO00049

PATIENT

DRUGS (1)
  1. BUPROPION HYDROCHLORIDE [Suspect]
     Active Substance: BUPROPION HYDROCHLORIDE
     Indication: Product used for unknown indication
     Route: 065

REACTIONS (4)
  - Abdominal pain upper [Unknown]
  - Headache [Unknown]
  - Product odour abnormal [Unknown]
  - Product quality issue [Unknown]
